FAERS Safety Report 7786078-6 (Version None)
Quarter: 2011Q3

REPORT INFORMATION
  Report Type: 
  Country: None (occurrence: None)
  Receive Date: 20110929
  Receipt Date: 20110927
  Transmission Date: 20111222
  Serious: Yes (Other)
  Sender: FDA-Public Use
  Company Number: US-AMGEN-US366705

PATIENT
  Sex: Male

DRUGS (14)
  1. DILTIAZEM HCL [Concomitant]
  2. ZOLOFT [Concomitant]
  3. NPLATE [Suspect]
     Dosage: 1 MUG/KG, UNK
     Dates: start: 20091001
  4. COUMADIN [Concomitant]
  5. FOLIC ACID [Concomitant]
  6. LISINOPRIL [Concomitant]
  7. SIMVASTATIN [Concomitant]
  8. NPLATE [Suspect]
     Indication: IDIOPATHIC THROMBOCYTOPENIC PURPURA
     Dosage: UNK UNK, QWK
     Route: 058
     Dates: start: 20070101
  9. NPLATE [Suspect]
     Dates: start: 20100902
  10. FOSAMAX [Concomitant]
  11. NPLATE [Suspect]
     Dates: start: 20091015
  12. INSULIN [Concomitant]
  13. CALCIUM CARBONATE [Concomitant]
  14. VITAMIN B6 [Concomitant]

REACTIONS (6)
  - TRAUMATIC HAEMATOMA [None]
  - HAEMORRHAGE [None]
  - PLATELET COUNT DECREASED [None]
  - SKIN HAEMORRHAGE [None]
  - THERAPEUTIC RESPONSE DECREASED [None]
  - SUTURE RELATED COMPLICATION [None]
